FAERS Safety Report 6590499-7 (Version None)
Quarter: 2010Q1

REPORT INFORMATION
  Report Type: 
  Country: None (occurrence: None)
  Receive Date: 20100219
  Receipt Date: 20100209
  Transmission Date: 20100710
  Serious: No
  Sender: FDA-Public Use
  Company Number: FI-ELI_LILLY_AND_COMPANY-FI200912004896

PATIENT
  Age: 8 Year
  Sex: Male
  Weight: 28 kg

DRUGS (2)
  1. STRATTERA [Suspect]
     Dosage: 40 MG, EACH MORNING
     Route: 065
  2. STRATTERA [Suspect]
     Dosage: 18 MG, EACH MORNING/ 10 MG EACH EVENING
     Route: 065
     Dates: start: 20091208, end: 20091228

REACTIONS (14)
  - ABDOMINAL PAIN UPPER [None]
  - AGGRESSION [None]
  - ASTHENIA [None]
  - COLD SWEAT [None]
  - CRYING [None]
  - DECREASED APPETITE [None]
  - FATIGUE [None]
  - HEADACHE [None]
  - NAUSEA [None]
  - PAIN [None]
  - PALLOR [None]
  - RESTLESSNESS [None]
  - SCREAMING [None]
  - SYNCOPE [None]
